FAERS Safety Report 13801682 (Version 1)
Quarter: 2017Q3

REPORT INFORMATION
  Report Type: Spontaneous
  Country: CH (occurrence: CH)
  Receive Date: 20170727
  Receipt Date: 20170727
  Transmission Date: 20171127
  Serious: Yes (Hospitalization)
  Sender: FDA-Public Use
  Company Number: CH-BAYER-2017-137210

PATIENT
  Age: 72 Year
  Sex: Male

DRUGS (1)
  1. ASPIRIN CARDIO 300 MG [Suspect]
     Active Substance: ASPIRIN
     Indication: CEREBROVASCULAR INSUFFICIENCY
     Dosage: 100 MG, QD
     Route: 048

REACTIONS (5)
  - Headache [Recovered/Resolved]
  - Intraventricular haemorrhage [Recovered/Resolved]
  - Abdominal pain [Recovered/Resolved]
  - Ruptured cerebral aneurysm [Recovered/Resolved]
  - Subarachnoid haemorrhage [Recovered/Resolved]

NARRATIVE: CASE EVENT DATE: 20170311
